FAERS Safety Report 4342952-4 (Version None)
Quarter: 2004Q2

REPORT INFORMATION
  Report Type: 
  Country: None (occurrence: None)
  Receive Date: 20040416
  Receipt Date: 20040407
  Transmission Date: 20050107
  Serious: Yes (Other)
  Sender: FDA-Public Use
  Company Number: 2004207999JP

PATIENT
  Sex: 0

DRUGS (1)
  1. XALANTAN (LATANOPROST)SOLUTION , STERILE, 50UG/ML [Suspect]
     Dosage: OPHTHALMIC
     Route: 047

REACTIONS (6)
  - BLINDNESS [None]
  - EYE PAIN [None]
  - INTRAOCULAR PRESSURE INCREASED [None]
  - IRIS ATROPHY [None]
  - PUPILLARY DISORDER [None]
  - RETINAL DETACHMENT [None]
